FAERS Safety Report 21795999 (Version 1)
Quarter: 2022Q4

REPORT INFORMATION
  Report Type: Spontaneous
  Country: BE (occurrence: BE)
  Receive Date: 20221229
  Receipt Date: 20221229
  Transmission Date: 20230113
  Serious: Yes (Disabling)
  Sender: FDA-Public Use
  Company Number: None

PATIENT
  Age: 65 Year
  Sex: Female
  Weight: 65 kg

DRUGS (5)
  1. XALKORI [Suspect]
     Active Substance: CRIZOTINIB
     Indication: Neoplasm malignant
     Dosage: UNK, 2X/DAY
     Route: 048
     Dates: start: 20210901
  2. XALKORI [Suspect]
     Active Substance: CRIZOTINIB
     Dosage: UNK, 1X/DAY
  3. XALKORI [Suspect]
     Active Substance: CRIZOTINIB
     Dosage: UNK, CYCLIC, 2 PER DAY FOR 2 DAYS AND ONE DAY OFF
  4. LEVOTHYROXINE SODIUM [Concomitant]
     Active Substance: LEVOTHYROXINE SODIUM
     Dosage: UNK
  5. ESOMEPRAZOLE SODIUM [Concomitant]
     Active Substance: ESOMEPRAZOLE SODIUM
     Dosage: UNK

REACTIONS (5)
  - Dysgeusia [Recovering/Resolving]
  - Hyposmia [Recovering/Resolving]
  - Decreased appetite [Recovering/Resolving]
  - Off label use [Unknown]
  - Product use issue [Unknown]

NARRATIVE: CASE EVENT DATE: 20210903
